FAERS Safety Report 15414550 (Version 3)
Quarter: 2018Q4

REPORT INFORMATION
  Report Type: Spontaneous
  Country: GB (occurrence: GB)
  Receive Date: 20180921
  Receipt Date: 20181113
  Transmission Date: 20190204
  Serious: Yes (Life-Threatening, Hospitalization, Other)
  Sender: FDA-Public Use
  Company Number: GB-PERRIGO-18GB009546

PATIENT

DRUGS (5)
  1. RANITIDINE HYDROCHLORIDE. [Suspect]
     Active Substance: RANITIDINE HYDROCHLORIDE
     Indication: INTENTIONAL OVERDOSE
     Dosage: 9 G, UNK
     Route: 065
  2. NIMODIPINE. [Suspect]
     Active Substance: NIMODIPINE
     Indication: INTENTIONAL OVERDOSE
     Dosage: 840 MG, UNK
     Route: 065
  3. PRAVASTATIN. [Suspect]
     Active Substance: PRAVASTATIN
     Indication: INTENTIONAL OVERDOSE
     Dosage: 840 MG, UNK
     Route: 065
  4. METFORMIN HYDROCHLORIDE 100MG/ML PL00427/0139 [Suspect]
     Active Substance: METFORMIN HYDROCHLORIDE
     Indication: INTENTIONAL OVERDOSE
     Dosage: 42 G, UNK
     Route: 065
  5. RISPERIDONE. [Suspect]
     Active Substance: RISPERIDONE
     Indication: INTENTIONAL OVERDOSE
     Dosage: 88 MG, UNK
     Route: 065

REACTIONS (14)
  - Lactic acidosis [Unknown]
  - Cerebral ischaemia [Unknown]
  - Brain injury [Recovering/Resolving]
  - Cardiovascular disorder [Not Recovered/Not Resolved]
  - Intentional overdose [Recovering/Resolving]
  - Toxicity to various agents [Recovering/Resolving]
  - Impaired work ability [Unknown]
  - Intensive care unit acquired weakness [Recovering/Resolving]
  - Renal failure [Recovering/Resolving]
  - Hypotension [Recovering/Resolving]
  - Cognitive disorder [Recovering/Resolving]
  - Cardiogenic shock [Recovering/Resolving]
  - Sinus bradycardia [Not Recovered/Not Resolved]
  - Nervous system disorder [Unknown]
